FAERS Safety Report 8426075-0 (Version None)
Quarter: 2012Q2

REPORT INFORMATION
  Report Type: 
  Country: None (occurrence: None)
  Receive Date: 20120611
  Receipt Date: 20120529
  Transmission Date: 20120825
  Serious: Yes (Other)
  Sender: FDA-Public Use
  Company Number: IE-ELI_LILLY_AND_COMPANY-IE201205010722

PATIENT
  Age: 31 Year
  Sex: Female

DRUGS (2)
  1. CYMBALTA [Suspect]
     Indication: SPINAL DECOMPRESSION
     Dosage: UNK
     Dates: start: 20110701
  2. LYRICA [Concomitant]

REACTIONS (5)
  - SELF-MEDICATION [None]
  - OFF LABEL USE [None]
  - BUNDLE BRANCH BLOCK LEFT [None]
  - SOMNOLENCE [None]
  - INCOHERENT [None]
